FAERS Safety Report 7528538-9 (Version None)
Quarter: 2011Q2

REPORT INFORMATION
  Report Type: 
  Country: None (occurrence: None)
  Receive Date: 20110607
  Receipt Date: 20110217
  Transmission Date: 20111010
  Serious: No
  Sender: FDA-Public Use
  Company Number: US-ASTRAZENECA-2010SE56690

PATIENT
  Age: 36 Year
  Sex: Female

DRUGS (3)
  1. MULTI-VITAMINS [Concomitant]
     Dosage: UNKNOWN
  2. LO/OVRAL-28 [Concomitant]
     Dosage: 1 TABLET, 1 /DAY
     Route: 048
  3. PRILOSEC OTC [Suspect]
     Indication: DYSPEPSIA
     Route: 048
     Dates: start: 20101121, end: 20101121

REACTIONS (6)
  - DRY MOUTH [None]
  - FLUSHING [None]
  - HYPERHIDROSIS [None]
  - NAUSEA [None]
  - CONFUSIONAL STATE [None]
  - HEART RATE INCREASED [None]
